FAERS Safety Report 23676181 (Version 3)
Quarter: 2024Q2

REPORT INFORMATION
  Report Type: Spontaneous
  Country: ES (occurrence: ES)
  Receive Date: 20240327
  Receipt Date: 20240523
  Transmission Date: 20240716
  Serious: Yes (Other)
  Sender: FDA-Public Use
  Company Number: ES-ELI_LILLY_AND_COMPANY-ES202306004213

PATIENT
  Age: 67 Year
  Sex: Female

DRUGS (7)
  1. FULVESTRANT [Suspect]
     Active Substance: FULVESTRANT
     Indication: Breast cancer metastatic
     Dosage: UNK (UNK UNK, 2/M)
     Route: 065
  2. ABEMACICLIB [Suspect]
     Active Substance: ABEMACICLIB
     Indication: Breast cancer metastatic
     Dosage: 100 MILLIGRAM (100 MG, UNKNOWN)
     Route: 048
  3. ABEMACICLIB [Suspect]
     Active Substance: ABEMACICLIB
     Dosage: 150 MILLIGRAM (150 MG, UNKNOWN)
     Route: 048
     Dates: start: 202305
  4. ABEMACICLIB [Suspect]
     Active Substance: ABEMACICLIB
     Dosage: 100 MILLIGRAM (100 MG, UNKNOWN)
     Route: 048
     Dates: start: 20230709
  5. ABEMACICLIB [Suspect]
     Active Substance: ABEMACICLIB
     Dosage: 100 MILLIGRAM (100 MG, UNKNOWN)
     Route: 048
     Dates: start: 20230907
  6. ABEMACICLIB [Suspect]
     Active Substance: ABEMACICLIB
     Dosage: 100 MILLIGRAM (100 MG, UNKNOWN)
     Route: 048
     Dates: start: 20230907
  7. ZOMETA [Suspect]
     Active Substance: ZOLEDRONIC ACID
     Indication: Breast cancer metastatic
     Dosage: UNK, MONTHLY (1/M)
     Route: 042

REACTIONS (32)
  - Pelvic venous thrombosis [Recovered/Resolved]
  - Spinal pain [Unknown]
  - Bone fissure [Unknown]
  - Asthenia [Recovering/Resolving]
  - Nausea [Recovering/Resolving]
  - Fatigue [Recovering/Resolving]
  - Dizziness [Recovering/Resolving]
  - Feeding disorder [Recovering/Resolving]
  - Hyperhidrosis [Recovering/Resolving]
  - Bone development abnormal [Recovering/Resolving]
  - Constipation [Recovering/Resolving]
  - Stomatitis [Recovering/Resolving]
  - Blood phosphorus decreased [Recovering/Resolving]
  - Oral infection [Recovering/Resolving]
  - Abdominal pain [Recovered/Resolved]
  - Lip swelling [Recovered/Resolved]
  - Diarrhoea [Recovered/Resolved]
  - Abdominal discomfort [Recovered/Resolved]
  - Vomiting [Recovered/Resolved]
  - Decreased appetite [Recovered/Resolved]
  - Drug intolerance [Unknown]
  - Lacrimation increased [Recovering/Resolving]
  - Eye pain [Recovering/Resolving]
  - Cataract [Recovering/Resolving]
  - Vision blurred [Recovering/Resolving]
  - Depressed mood [Recovering/Resolving]
  - Foreign body sensation in eyes [Recovering/Resolving]
  - Feeling cold [Recovering/Resolving]
  - Pyrexia [Recovered/Resolved]
  - Peripheral swelling [Recovered/Resolved]
  - Headache [Recovered/Resolved]
  - Poor quality sleep [Recovering/Resolving]
